FAERS Safety Report 7415952-5 (Version None)
Quarter: 2011Q2

REPORT INFORMATION
  Report Type: 
  Country: None (occurrence: None)
  Receive Date: 20110414
  Receipt Date: 20110404
  Transmission Date: 20111010
  Serious: Yes (Congenital Anomaly, Other)
  Sender: FDA-Public Use
  Company Number: PHHY2011US28169

PATIENT
  Sex: Male

DRUGS (7)
  1. PROPYLTHIOURACIL [Suspect]
  2. SYNTHROID [Suspect]
     Dosage: UNK UKN, UNK
     Route: 064
  3. PROPRANOLOL [Suspect]
     Dosage: UNK UKN, UNK
     Route: 064
  4. FOLIC ACID [Concomitant]
     Dosage: UNK UKN, UNK
     Route: 064
  5. PRENATAL VITAMINS [Concomitant]
     Dosage: UNK UKN, UNK
     Route: 064
  6. FLUOXETINE [Concomitant]
     Dosage: UNK UKN, UNK
     Route: 064
  7. METHIMAZOLE [Suspect]
     Indication: HYPERTHYROIDISM
     Dosage: UNK UKN, UNK
     Route: 064

REACTIONS (14)
  - OESOPHAGEAL ATRESIA [None]
  - TRACHEO-OESOPHAGEAL FISTULA [None]
  - HYPOTHALAMO-PITUITARY DISORDER [None]
  - DRUG EXPOSURE DURING PREGNANCY [None]
  - PREMATURE BABY [None]
  - DYSMORPHISM [None]
  - TRACHEOMALACIA [None]
  - ENLARGED CEREBRAL PERIVASCULAR SPACES [None]
  - RESPIRATORY DISTRESS [None]
  - APLASIA CUTIS CONGENITA [None]
  - CLINODACTYLY [None]
  - GASTROOESOPHAGEAL REFLUX DISEASE [None]
  - DEAFNESS NEUROSENSORY [None]
  - DYSPHAGIA [None]
